FAERS Safety Report 11052005 (Version 1)
Quarter: 2015Q2

REPORT INFORMATION
  Report Type: Spontaneous
  Country: US (occurrence: None)
  Receive Date: 20150420
  Receipt Date: 20150420
  Transmission Date: 20150821
  Serious: Yes (Hospitalization)
  Sender: FDA-Public Use
  Company Number: None

PATIENT
  Age: 56 Year
  Sex: Male
  Weight: 100 kg

DRUGS (6)
  1. RITUXIMAB (MOAB C2B8 ANTI CD20, CHIMERIC) [Suspect]
     Active Substance: RITUXIMAB
     Dates: end: 20150406
  2. PREDNISONE. [Suspect]
     Active Substance: PREDNISONE
     Dates: end: 20150410
  3. CYCLOPHOSPHAMIDE. [Suspect]
     Active Substance: CYCLOPHOSPHAMIDE
     Dates: end: 20150410
  4. DOXORUBICIN HYDROCHLORIDE. [Suspect]
     Active Substance: DOXORUBICIN HYDROCHLORIDE
     Dates: end: 20150409
  5. ETOPOSIDE (VP-16) [Suspect]
     Active Substance: ETOPOSIDE
     Dates: end: 20150409
  6. VINCRISTINE SULFATE. [Suspect]
     Active Substance: VINCRISTINE SULFATE
     Dates: end: 20150409

REACTIONS (11)
  - Cough [None]
  - Chills [None]
  - Human rhinovirus test positive [None]
  - Neutropenia [None]
  - Candida infection [None]
  - Oral mucosa erosion [None]
  - Blood lactic acid increased [None]
  - Mucosal inflammation [None]
  - Pyrexia [None]
  - Superinfection [None]
  - Enterovirus test positive [None]

NARRATIVE: CASE EVENT DATE: 20150416
